FAERS Safety Report 17133730 (Version 2)
Quarter: 2020Q1

REPORT INFORMATION
  Report Type: Spontaneous
  Country: US (occurrence: US)
  Receive Date: 20191210
  Receipt Date: 20200305
  Transmission Date: 20200409
  Serious: No
  Sender: FDA-Public Use
  Company Number: US-GLENMARK PHARMACEUTICALS-2019GMK044410

PATIENT

DRUGS (4)
  1. CLOBETASOL PROPIONATE FOAM, 0.05% [Suspect]
     Active Substance: CLOBETASOL PROPIONATE
     Indication: ALOPECIA
     Dosage: UNK, BID
     Route: 061
     Dates: start: 2019, end: 2019
  2. CLOBETASOL PROPIONATE FOAM, 0.05% [Suspect]
     Active Substance: CLOBETASOL PROPIONATE
     Dosage: ONLY USED ABOUT 2 OR 3 TIMES
     Route: 061
     Dates: start: 2019
  3. INSULIN [Concomitant]
     Active Substance: INSULIN NOS
     Indication: DIABETES MELLITUS
     Dosage: UNK
     Route: 065
  4. METFORMIN [Concomitant]
     Active Substance: METFORMIN HYDROCHLORIDE
     Indication: DIABETES MELLITUS
     Dosage: UNK
     Route: 065

REACTIONS (3)
  - No adverse event [Unknown]
  - Product use issue [Unknown]
  - Device issue [Unknown]

NARRATIVE: CASE EVENT DATE: 2019
